FAERS Safety Report 23463563 (Version 4)
Quarter: 2025Q1

REPORT INFORMATION
  Report Type: Report from Study
  Country: CA (occurrence: CA)
  Receive Date: 20240131
  Receipt Date: 20250117
  Transmission Date: 20250408
  Serious: Yes (Other)
  Sender: TAKEDA
  Company Number: CA-TAKEDA-2023TUS078714

PATIENT
  Sex: Female

DRUGS (5)
  1. VEDOLIZUMAB [Suspect]
     Active Substance: VEDOLIZUMAB
     Indication: Crohn^s disease
  2. VEDOLIZUMAB [Suspect]
     Active Substance: VEDOLIZUMAB
  3. IMURAN [Suspect]
     Active Substance: AZATHIOPRINE
     Indication: Arthritis
  4. TYLENOL [Concomitant]
     Active Substance: ACETAMINOPHEN
  5. RUXIENCE [Concomitant]
     Active Substance: RITUXIMAB-PVVR

REACTIONS (4)
  - Arthritis [Not Recovered/Not Resolved]
  - Gastrointestinal disorder [Unknown]
  - Drug ineffective [Unknown]
  - Pain [Unknown]
